FAERS Safety Report 19779329 (Version 1)
Quarter: 2021Q3

REPORT INFORMATION
  Report Type: Spontaneous
  Country: CN (occurrence: CN)
  Receive Date: 20210902
  Receipt Date: 20210902
  Transmission Date: 20211014
  Serious: Yes (Other)
  Sender: FDA-Public Use
  Company Number: CN-BAYER-2021-203602

PATIENT
  Age: 55 Year
  Sex: Female
  Weight: 72 kg

DRUGS (2)
  1. IOPROMIDE. [Suspect]
     Active Substance: IOPROMIDE
     Indication: COMPUTERISED TOMOGRAM ABDOMEN
  2. IOPROMIDE. [Suspect]
     Active Substance: IOPROMIDE
     Indication: CORONARY ARTERY DISEASE
     Dosage: 100 ML, ONCE
     Route: 042
     Dates: start: 20210820, end: 20210820

REACTIONS (4)
  - Injection site pruritus [Recovering/Resolving]
  - Abdominal pain upper [Recovering/Resolving]
  - Chest discomfort [Recovering/Resolving]
  - Suffocation feeling [Recovering/Resolving]

NARRATIVE: CASE EVENT DATE: 20210820
